FAERS Safety Report 11354737 (Version 1)
Quarter: 2015Q3

REPORT INFORMATION
  Report Type: Spontaneous
  Country: US (occurrence: US)
  Receive Date: 20150807
  Receipt Date: 20150807
  Transmission Date: 20151125
  Serious: No
  Sender: FDA-Public Use
  Company Number: US-JNJFOC-20141205020

PATIENT
  Age: 69 Year
  Sex: Female
  Weight: 54.43 kg

DRUGS (5)
  1. WOMENS ROGAINE EXTRA STRENGTH [Suspect]
     Active Substance: MINOXIDIL
     Indication: HAIR GROWTH ABNORMAL
     Dosage: HALF CAPFUL
     Route: 061
     Dates: start: 20141020
  2. FINASTERIDE. [Concomitant]
     Active Substance: FINASTERIDE
     Indication: ANTIOESTROGEN THERAPY
     Dosage: DID NOT ASK
     Route: 065
     Dates: end: 201410
  3. ESTRADIOL. [Concomitant]
     Active Substance: ESTRADIOL
     Indication: HORMONE REPLACEMENT THERAPY
     Dosage: 7 YEARS
     Route: 065
  4. MEDROXYPR AC [Concomitant]
     Indication: HORMONE REPLACEMENT THERAPY
     Route: 065
  5. WOMENS ROGAINE EXTRA STRENGTH [Suspect]
     Active Substance: MINOXIDIL
     Route: 061

REACTIONS (3)
  - Pain in extremity [Unknown]
  - Drug ineffective [Unknown]
  - Chest pain [Unknown]
